FAERS Safety Report 5439512-0 (Version None)
Quarter: 2007Q3

REPORT INFORMATION
  Report Type: 
  Country: None (occurrence: None)
  Receive Date: 20070831
  Receipt Date: 20070820
  Transmission Date: 20080115
  Serious: Yes (Death)
  Sender: FDA-Public Use
  Company Number: JP-ROCHE-512973

PATIENT
  Age: 65 Year
  Sex: Male

DRUGS (5)
  1. VESANOID [Suspect]
     Indication: ACUTE PROMYELOCYTIC LEUKAEMIA
     Dosage: IN THE DAYTIME, IN THE EVENING: 20 MG.
     Route: 048
     Dates: start: 20070709, end: 20070709
  2. VESANOID [Suspect]
     Route: 048
     Dates: start: 20070710, end: 20070710
  3. CYLOCIDE [Concomitant]
     Dosage: ROUTE: INJECTABLE (NOT OTHERWISE SPECIFIED.
     Route: 050
     Dates: start: 20070628
  4. IDAMYCIN [Concomitant]
     Dosage: ROUTE: INTRAVENOUS (NOT OTHERWISE SPECIFIED).
     Route: 042
     Dates: start: 20070628
  5. GRAN [Concomitant]
     Dosage: ROUTE: INJECTABLE (NOT OTHERWISE SPECIFIED). GENERIC NAME: FILGRASTIM (GENETICAL RECOMBINATION).
     Route: 050
     Dates: start: 20070705

REACTIONS (1)
  - PULMONARY ALVEOLAR HAEMORRHAGE [None]
